FAERS Safety Report 5302844-0 (Version None)
Quarter: 2007Q2

REPORT INFORMATION
  Report Type: 
  Country: None (occurrence: None)
  Receive Date: 20070417
  Receipt Date: 20070417
  Transmission Date: 20071010
  Serious: No
  Sender: FDA-Public Use
  Company Number: None

PATIENT
  Sex: Female
  Weight: 48.63 kg

DRUGS (2)
  1. TEMOZOLOMIDE [Suspect]
     Dosage: 2900 MG
     Dates: start: 20070220, end: 20070311
  2. DECADRON [Concomitant]

REACTIONS (4)
  - DRUG TOXICITY [None]
  - NEUTROPENIA [None]
  - PLATELET COUNT DECREASED [None]
  - WHITE BLOOD CELL COUNT DECREASED [None]
